FAERS Safety Report 17927456 (Version 1)
Quarter: 2020Q2

REPORT INFORMATION
  Report Type: Spontaneous
  Country: CZ (occurrence: CZ)
  Receive Date: 20200622
  Receipt Date: 20200622
  Transmission Date: 20200714
  Serious: Yes (Other)
  Sender: FDA-Public Use
  Company Number: CZ-US-PROVELL PHARMACEUTICALS LLC-9168798

PATIENT
  Sex: Female

DRUGS (1)
  1. EUTHYROX [Suspect]
     Active Substance: LEVOTHYROXINE SODIUM
     Indication: PRODUCT USED FOR UNKNOWN INDICATION

REACTIONS (10)
  - Crohn^s disease [Unknown]
  - Gastric disorder [Unknown]
  - Blood glucose decreased [Unknown]
  - Gastrointestinal inflammation [Unknown]
  - Hypergammaglobulinaemia benign monoclonal [Unknown]
  - Night sweats [Unknown]
  - Cold sweat [Unknown]
  - Malaise [Unknown]
  - Blood pressure decreased [Unknown]
  - Nausea [Unknown]
